FAERS Safety Report 19499083 (Version 1)
Quarter: 2021Q3

REPORT INFORMATION
  Report Type: Spontaneous
  Country: DE (occurrence: DE)
  Receive Date: 20210706
  Receipt Date: 20210706
  Transmission Date: 20211014
  Serious: Yes (Hospitalization)
  Sender: FDA-Public Use
  Company Number: NVSC2021DE146705

PATIENT
  Age: 54 Year
  Sex: Male

DRUGS (2)
  1. IBUPROFEN. [Suspect]
     Active Substance: IBUPROFEN
     Indication: MEDICATION ERROR
     Dosage: BEDARF, TABLETTEN, PRN
     Route: 048
  2. ACETYLSALICYLIC ACID [Suspect]
     Active Substance: ASPIRIN
     Indication: MEDICATION ERROR
     Dosage: BEDARF, TABLETTEN, PRN
     Route: 048

REACTIONS (2)
  - Headache [Unknown]
  - Medication error [Unknown]
